FAERS Safety Report 6026341-2 (Version None)
Quarter: 2008Q4

REPORT INFORMATION
  Report Type: 
  Country: None (occurrence: None)
  Receive Date: 20081222
  Receipt Date: 20081013
  Transmission Date: 20090506
  Serious: No
  Sender: FDA-Public Use
  Company Number: US-WYE-H06383708

PATIENT
  Age: 75 Year
  Sex: Female
  Weight: 76.27 kg

DRUGS (5)
  1. PRISTIQ [Suspect]
     Indication: DEPRESSION
     Dosage: 50 MG 1X PER 1 DAY, ORAL
     Route: 048
     Dates: start: 20080915
  2. ATIVAN [Suspect]
     Indication: ANXIETY
     Dosage: 1 MG 4X PER 1 DAY
     Dates: start: 19780101
  3. ATIVAN [Suspect]
     Indication: INSOMNIA
     Dosage: 1 MG 4X PER 1 DAY
     Dates: start: 19780101
  4. PROPRANOLOL [Concomitant]
  5. LASIX [Concomitant]

REACTIONS (9)
  - ASTHENIA [None]
  - CONDITION AGGRAVATED [None]
  - DECREASED APPETITE [None]
  - DEPRESSION [None]
  - DRUG INEFFECTIVE [None]
  - FEELING ABNORMAL [None]
  - HYPOTONIA [None]
  - NAUSEA [None]
  - WEIGHT DECREASED [None]
